FAERS Safety Report 12439090 (Version 2)
Quarter: 2016Q3

REPORT INFORMATION
  Report Type: Report from Study
  Country: DE (occurrence: DE)
  Receive Date: 20160606
  Receipt Date: 20160715
  Transmission Date: 20161109
  Serious: Yes (Hospitalization, Other)
  Sender: FDA-Public Use
  Company Number: DE-ABBVIE-16P-062-1641899-00

PATIENT
  Age: 72 Year
  Sex: Male
  Weight: 100 kg

DRUGS (15)
  1. MADOPAR [Suspect]
     Active Substance: BENSERAZIDE HYDROCHLORIDE\LEVODOPA
     Indication: PRODUCT USED FOR UNKNOWN INDICATION
     Route: 065
  2. LEVOCARB [Concomitant]
     Active Substance: CARBIDOPA\LEVODOPA
     Indication: PRODUCT USED FOR UNKNOWN INDICATION
     Dosage: 100/25 MG, 2X1 AND 4X1.5 PER DAY
  3. SALBUTAMOL [Concomitant]
     Active Substance: ALBUTEROL
     Indication: PRODUCT USED FOR UNKNOWN INDICATION
  4. NEBIVOLOL. [Concomitant]
     Active Substance: NEBIVOLOL
  5. ATORVASTATIN [Concomitant]
     Active Substance: ATORVASTATIN
     Indication: DYSLIPIDAEMIA
  6. NEBIVOLOL. [Concomitant]
     Active Substance: NEBIVOLOL
     Indication: PRODUCT USED FOR UNKNOWN INDICATION
  7. DUODOPA [Suspect]
     Active Substance: CARBIDOPA\LEVODOPA
     Indication: PARKINSON^S DISEASE
     Dosage: MD 7 ML; CRD 3,6 ML/H; ED 2,0 ML
     Route: 050
     Dates: start: 20120103, end: 20160524
  8. ASPIRIN. [Concomitant]
     Active Substance: ASPIRIN
     Indication: PRODUCT USED FOR UNKNOWN INDICATION
  9. MIRTAZAPIN [Concomitant]
     Active Substance: MIRTAZAPINE
     Indication: PRODUCT USED FOR UNKNOWN INDICATION
     Dates: start: 20160620
  10. MADOPAR [Suspect]
     Active Substance: BENSERAZIDE HYDROCHLORIDE\LEVODOPA
     Route: 065
  11. ELIQUIS [Concomitant]
     Active Substance: APIXABAN
     Indication: PRODUCT USED FOR UNKNOWN INDICATION
  12. ELIQUIS [Concomitant]
     Active Substance: APIXABAN
  13. DUODOPA [Suspect]
     Active Substance: CARBIDOPA\LEVODOPA
     Route: 050
     Dates: start: 20160617
  14. MIRTAZAPIN [Concomitant]
     Active Substance: MIRTAZAPINE
     Dates: start: 20160620
  15. ATROVENT [Concomitant]
     Active Substance: IPRATROPIUM BROMIDE
     Indication: PRODUCT USED FOR UNKNOWN INDICATION

REACTIONS (43)
  - Blood pressure fluctuation [Unknown]
  - Blood pressure decreased [Not Recovered/Not Resolved]
  - Chills [Unknown]
  - Dysstasia [Unknown]
  - Hypertension [Unknown]
  - Syncope [Unknown]
  - Obesity [Unknown]
  - Bundle branch block right [Unknown]
  - Dyspnoea [Recovering/Resolving]
  - Lung disorder [Unknown]
  - Gait disturbance [Unknown]
  - Fatigue [Unknown]
  - Coronary artery disease [Unknown]
  - Decubitus ulcer [Unknown]
  - Hypercholesterolaemia [Unknown]
  - Speech disorder [Unknown]
  - Phimosis [Unknown]
  - Blood glucose increased [Unknown]
  - Diarrhoea [Unknown]
  - Multiple system atrophy [Unknown]
  - Venous thrombosis limb [Unknown]
  - Slow speech [Unknown]
  - Dysarthria [Recovering/Resolving]
  - Pollakiuria [Unknown]
  - Mobility decreased [Unknown]
  - Blood creatinine increased [Recovered/Resolved]
  - Hypertension [Unknown]
  - Device issue [Unknown]
  - Orthostatic intolerance [Recovering/Resolving]
  - Atrial fibrillation [Unknown]
  - Respiratory gas exchange disorder [Unknown]
  - General physical health deterioration [Unknown]
  - Dysphagia [Recovering/Resolving]
  - Rapid eye movements sleep abnormal [Unknown]
  - Bradycardia [Unknown]
  - Cogwheel rigidity [Unknown]
  - Haemoglobin decreased [Recovered/Resolved]
  - Ileus [Unknown]
  - Dyslipidaemia [Unknown]
  - Muscular weakness [Unknown]
  - Bundle branch block left [Unknown]
  - Hyperkinesia [Unknown]
  - On and off phenomenon [Unknown]

NARRATIVE: CASE EVENT DATE: 2012
